FAERS Safety Report 11333294 (Version 1)
Quarter: 2015Q3

REPORT INFORMATION
  Report Type: Spontaneous
  Country: US (occurrence: US)
  Receive Date: 20150803
  Receipt Date: 20150803
  Transmission Date: 20151125
  Serious: Yes (Other)
  Sender: FDA-Public Use
  Company Number: US-ELI_LILLY_AND_COMPANY-US200712003748

PATIENT
  Age: 31 Year
  Sex: Male
  Weight: 108.39 kg

DRUGS (5)
  1. CYMBALTA [Concomitant]
     Active Substance: DULOXETINE HYDROCHLORIDE
     Dosage: UNK, UNK
     Dates: start: 200712
  2. ZYPREXA [Suspect]
     Active Substance: OLANZAPINE
     Indication: SCHIZOPHRENIA
     Dosage: 40 MG, UNK
     Dates: start: 1999
  3. TOPAMAX [Concomitant]
     Active Substance: TOPIRAMATE
  4. LAMICTAL [Concomitant]
     Active Substance: LAMOTRIGINE
  5. RISPERIDONE. [Concomitant]
     Active Substance: RISPERIDONE
     Dates: end: 200712

REACTIONS (2)
  - Weight increased [Not Recovered/Not Resolved]
  - Prescribed overdose [Not Recovered/Not Resolved]

NARRATIVE: CASE EVENT DATE: 1999
